FAERS Safety Report 9013683 (Version 1)
Quarter: 2013Q1

REPORT INFORMATION
  Report Type: Spontaneous
  Country: US (occurrence: None)
  Receive Date: 20130108
  Receipt Date: 20130108
  Transmission Date: 20140127
  Serious: No
  Sender: FDA-Public Use
  Company Number: None

PATIENT
  Sex: 0

DRUGS (1)
  1. RHOPHYLAC [Suspect]
     Indication: RHESUS ANTIBODIES POSITIVE
     Dosage: 300 MCG ONCE IV
     Route: 042

REACTIONS (1)
  - Product container seal issue [None]
